FAERS Safety Report 7606178-0 (Version None)
Quarter: 2011Q3

REPORT INFORMATION
  Report Type: 
  Country: None (occurrence: None)
  Receive Date: 20110713
  Receipt Date: 20110708
  Transmission Date: 20111222
  Serious: Yes (Life-Threatening)
  Sender: FDA-Public Use
  Company Number: US-CELGENEUS-163-21880-11070983

PATIENT
  Sex: Male

DRUGS (10)
  1. VITAMIN-MINERAL COMPOUND TAB [Concomitant]
     Route: 065
  2. REVLIMID [Suspect]
     Dosage: 25 MILLIGRAM
     Route: 048
     Dates: start: 20080414, end: 20090101
  3. NOVOLOG MIX 70/30 [Concomitant]
     Route: 065
  4. AVODART [Concomitant]
     Route: 065
  5. REVLIMID [Suspect]
     Dosage: 10 MILLIGRAM
     Route: 048
     Dates: start: 20090601
  6. ISOSORBIDE MONONITRATE [Concomitant]
     Route: 065
  7. LANTUS [Concomitant]
     Route: 065
  8. UROXATRAL [Concomitant]
     Route: 065
  9. WARFARIN SODIUM [Concomitant]
     Route: 065
  10. AMOXICILLIN [Concomitant]
     Route: 065

REACTIONS (1)
  - MULTIPLE MYELOMA [None]
